FAERS Safety Report 12338149 (Version 2)
Quarter: 2018Q4

REPORT INFORMATION
  Report Type: Spontaneous
  Country: FR (occurrence: FR)
  Receive Date: 20160505
  Receipt Date: 20181129
  Transmission Date: 20190204
  Serious: Yes (Hospitalization, Other)
  Sender: FDA-Public Use
  Company Number: PHHY2016FR050391

PATIENT
  Age: 25 Year
  Sex: Female
  Weight: 38 kg

DRUGS (3)
  1. EXJADE [Suspect]
     Active Substance: DEFERASIROX
     Indication: HAEMOCHROMATOSIS
     Dosage: 1500 MG, (40 MG/KG/DAY)
     Route: 048
     Dates: start: 2003, end: 2010
  2. EXJADE [Suspect]
     Active Substance: DEFERASIROX
     Dosage: 1500 MG, (40 MG/KG/DAY)
     Route: 048
     Dates: start: 2012, end: 20160410
  3. EXJADE [Suspect]
     Active Substance: DEFERASIROX
     Dosage: 1500 MG, QD
     Route: 048
     Dates: start: 201206, end: 20160329

REACTIONS (5)
  - Acute kidney injury [Unknown]
  - Blood creatinine increased [Recovered/Resolved]
  - Calculus urinary [Recovered/Resolved]
  - Nephrolithiasis [Not Recovered/Not Resolved]
  - Renal colic [Recovered/Resolved]

NARRATIVE: CASE EVENT DATE: 2011
